FAERS Safety Report 21590274 (Version 1)
Quarter: 2022Q4

REPORT INFORMATION
  Report Type: Spontaneous
  Country: US (occurrence: None)
  Receive Date: 20221111
  Receipt Date: 20221111
  Transmission Date: 20230113
  Serious: Yes (Other)
  Sender: FDA-Public Use
  Company Number: None

PATIENT
  Age: 66 Year
  Sex: Male
  Weight: 90 kg

DRUGS (5)
  1. CEPHALEXIN [Suspect]
     Active Substance: CEPHALEXIN
     Indication: Wound
     Dosage: 1 CAPSULES 4 TIMES A DAY ORAL
     Route: 048
     Dates: start: 20221109
  2. AMLODIPINE BESYLATE [Concomitant]
     Active Substance: AMLODIPINE BESYLATE
  3. Atenonol [Concomitant]
  4. ISORDIL [Concomitant]
     Active Substance: ISOSORBIDE DINITRATE
  5. 81 mg Asprin [Concomitant]

REACTIONS (5)
  - Oral discomfort [None]
  - Oral discomfort [None]
  - Discomfort [None]
  - Palatal disorder [None]
  - Eating disorder [None]

NARRATIVE: CASE EVENT DATE: 20221110
